FAERS Safety Report 4869896-3 (Version None)
Quarter: 2005Q4

REPORT INFORMATION
  Report Type: 
  Country: None (occurrence: None)
  Receive Date: 20051230
  Receipt Date: 20050902
  Transmission Date: 20060501
  Serious: Yes (Hospitalization, Disabling, Other)
  Sender: FDA-Public Use
  Company Number: US-MERCK-0509USA00542

PATIENT
  Age: 68 Year
  Sex: Male
  Weight: 98 kg

DRUGS (2)
  1. VIOXX [Suspect]
     Indication: ARTHRALGIA
     Route: 048
     Dates: start: 20010716, end: 20030101
  2. VIOXX [Suspect]
     Route: 048
     Dates: start: 20010716, end: 20030101

REACTIONS (6)
  - ADVERSE EVENT [None]
  - ARTHROPATHY [None]
  - CARDIOVASCULAR DISORDER [None]
  - EMOTIONAL DISTRESS [None]
  - MYOCARDIAL INFARCTION [None]
  - SEPSIS [None]
